FAERS Safety Report 25626964 (Version 2)
Quarter: 2025Q3

REPORT INFORMATION
  Report Type: Other
  Country: US (occurrence: US)
  Receive Date: 20250731
  Receipt Date: 20250905
  Transmission Date: 20251021
  Serious: No
  Sender: APOTEX
  Company Number: US-APOTEX-2025AP010845

PATIENT
  Age: 51 Year
  Sex: Female

DRUGS (1)
  1. LENALIDOMIDE [Suspect]
     Active Substance: LENALIDOMIDE
     Indication: Plasma cell myeloma
     Dosage: CAPSULE DAILY FOR 21 DAYS ON AND 7 DAYS OFF
     Route: 065

REACTIONS (1)
  - Human chorionic gonadotropin increased [Recovered/Resolved]

NARRATIVE: CASE EVENT DATE: 20250722
